FAERS Safety Report 9956025 (Version 1)
Quarter: 2014Q1

REPORT INFORMATION
  Report Type: Spontaneous
  Country: PR (occurrence: PR)
  Receive Date: 20140304
  Receipt Date: 20140304
  Transmission Date: 20141002
  Serious: No
  Sender: FDA-Public Use
  Company Number: PR-ABBVIE-13P-131-1083065-00

PATIENT
  Age: 43 Year
  Sex: Female
  Weight: 63.56 kg

DRUGS (6)
  1. HUMIRA [Suspect]
     Indication: RHEUMATOID ARTHRITIS
     Route: 058
     Dates: start: 20130412
  2. CYMBALTA [Concomitant]
     Indication: FIBROMYALGIA
     Route: 048
  3. METHOTREXATE [Concomitant]
     Indication: FIBROMYALGIA
     Route: 048
  4. VITAMIN D [Concomitant]
     Indication: VITAMIN SUPPLEMENTATION
     Dosage: 1 TAB WEEKLY
     Route: 048
  5. CALTRATE WITH VITAMIN D [Concomitant]
     Indication: MINERAL SUPPLEMENTATION
     Route: 048
  6. UNKNOWN MEDICATION [Concomitant]
     Indication: INSOMNIA
     Route: 048

REACTIONS (2)
  - Mood altered [Not Recovered/Not Resolved]
  - Chills [Recovered/Resolved]
